FAERS Safety Report 4446405-4 (Version None)
Quarter: 2004Q3

REPORT INFORMATION
  Report Type: 
  Country: None (occurrence: None)
  Receive Date: 20040902
  Receipt Date: 20040816
  Transmission Date: 20050211
  Serious: Yes (Hospitalization)
  Sender: FDA-Public Use
  Company Number: GBT040801564

PATIENT
  Age: 66 Year
  Sex: Male
  Weight: 68 kg

DRUGS (4)
  1. GEMCITABINE HYDROCHLORIDE-IV (GEMCITABINE) [Suspect]
     Indication: NON-SMALL CELL LUNG CANCER
     Dosage: 2120 MG
     Dates: start: 20040312
  2. CARBOPLATIN [Suspect]
     Indication: NON-SMALL CELL LUNG CANCER
     Dosage: 520 MG
     Dates: start: 20040312
  3. ACETAMINOPHEN [Concomitant]
  4. ALBUTEROL [Concomitant]

REACTIONS (2)
  - ANAL FISSURE [None]
  - PLATELET COUNT DECREASED [None]
